FAERS Safety Report 7556652-0 (Version None)
Quarter: 2011Q2

REPORT INFORMATION
  Report Type: 
  Country: None (occurrence: None)
  Receive Date: 20110620
  Receipt Date: 20110610
  Transmission Date: 20111010
  Serious: Yes (Other)
  Sender: FDA-Public Use
  Company Number: US-PERRIGO-11US004865

PATIENT
  Sex: Female
  Weight: 113.38 kg

DRUGS (2)
  1. TUSSIN DM LIQ 359 [Suspect]
     Indication: PULMONARY CONGESTION
  2. TUSSIN DM LIQ 359 [Suspect]
     Indication: COUGH
     Dosage: 10 ML, SINGLE
     Route: 048
     Dates: start: 20110609, end: 20110609

REACTIONS (5)
  - SYNCOPE [None]
  - EXOPHTHALMOS [None]
  - COUGH [None]
  - LOSS OF CONSCIOUSNESS [None]
  - APNOEA [None]
